FAERS Safety Report 7623570-9 (Version None)
Quarter: 2011Q3

REPORT INFORMATION
  Report Type: 
  Country: None (occurrence: None)
  Receive Date: 20110712
  Receipt Date: 20110628
  Transmission Date: 20111222
  Serious: Yes (Hospitalization)
  Sender: FDA-Public Use
  Company Number: MTX-11-05

PATIENT
  Age: 5 Year
  Sex: Male

DRUGS (1)
  1. METHOTREXATE [Suspect]
     Indication: B-CELL LYMPHOMA

REACTIONS (8)
  - INTESTINAL OBSTRUCTION [None]
  - PAIN [None]
  - FEBRILE NEUTROPENIA [None]
  - ABDOMINAL DISTENSION [None]
  - CONSTIPATION [None]
  - MUCOSAL INFLAMMATION [None]
  - INTESTINAL STENOSIS [None]
  - VOMITING [None]
